FAERS Safety Report 6611151-5 (Version None)
Quarter: 2010Q1

REPORT INFORMATION
  Report Type: 
  Country: None (occurrence: None)
  Receive Date: 20100302
  Receipt Date: 20100302
  Transmission Date: 20100710
  Serious: Yes (Hospitalization)
  Sender: FDA-Public Use
  Company Number: None

PATIENT
  Age: 75 Year
  Sex: Male
  Weight: 97 kg

DRUGS (13)
  1. COUMADIN [Suspect]
     Indication: AORTIC VALVE REPLACEMENT
     Dosage: 5 MG DAILY PO CHRONIC
     Route: 048
  2. ASPIRIN [Suspect]
     Indication: AORTIC VALVE REPLACEMENT
     Dosage: 5 MG DAILY PO CHRONIC
     Route: 048
  3. SINGULAIR [Concomitant]
  4. MACROBID [Concomitant]
  5. ADVAIR DISKUS 100/50 [Concomitant]
  6. FLOMAX [Concomitant]
  7. AVODART [Concomitant]
  8. RHINOCORT [Concomitant]
  9. LEXAPRO [Concomitant]
  10. FEXOFENADINE [Concomitant]
  11. GLIMEPIRIDE [Concomitant]
  12. PROVENTIL [Concomitant]
  13. TYLENOL-500 [Concomitant]

REACTIONS (2)
  - INTERNATIONAL NORMALISED RATIO INCREASED [None]
  - UPPER GASTROINTESTINAL HAEMORRHAGE [None]
